FAERS Safety Report 7529509-9 (Version None)
Quarter: 2011Q2

REPORT INFORMATION
  Report Type: 
  Country: None (occurrence: None)
  Receive Date: 20110520
  Receipt Date: 20101220
  Transmission Date: 20111010
  Serious: No
  Sender: FDA-Public Use
  Company Number: 024196

PATIENT

DRUGS (1)
  1. LACOSAMIDE [Suspect]

REACTIONS (9)
  - DIPLOPIA [None]
  - LETHARGY [None]
  - DIZZINESS [None]
  - HEADACHE [None]
  - WEIGHT INCREASED [None]
  - DRUG INEFFECTIVE [None]
  - RASH [None]
  - NAUSEA [None]
  - ABNORMAL BEHAVIOUR [None]
